FAERS Safety Report 8540362-7 (Version None)
Quarter: 2012Q3

REPORT INFORMATION
  Report Type: 
  Country: None (occurrence: None)
  Receive Date: 20120726
  Receipt Date: 20110829
  Transmission Date: 20120928
  Serious: No
  Sender: FDA-Public Use
  Company Number: US-ASTRAZENECA-2010SE29861

PATIENT
  Age: 61 Year
  Sex: Female
  Weight: 61.2 kg

DRUGS (5)
  1. ZOLOFT [Concomitant]
  2. CLONAZEPAM [Concomitant]
  3. HYDROCHLOROTHIAZIDE [Concomitant]
  4. SEROQUEL [Suspect]
     Indication: SLEEP DISORDER
     Route: 048
  5. PREMARIN [Concomitant]

REACTIONS (5)
  - BURNING SENSATION [None]
  - PAIN IN EXTREMITY [None]
  - INSOMNIA [None]
  - MENTAL DISORDER [None]
  - DRUG DOSE OMISSION [None]
